FAERS Safety Report 5679355-6 (Version None)
Quarter: 2008Q1

REPORT INFORMATION
  Report Type: 
  Country: None (occurrence: None)
  Receive Date: 20080321
  Receipt Date: 20080314
  Transmission Date: 20080703
  Serious: Yes (Other)
  Sender: FDA-Public Use
  Company Number: 2008S1000079

PATIENT
  Age: 37 Year
  Sex: Male

DRUGS (2)
  1. ACITRETIN [Suspect]
     Indication: PITYRIASIS RUBRA PILARIS
     Dosage: 0.5 MG/KG; QD; PO, 0.3 MG/KG; QD; PO
     Route: 048
  2. CYCLOSPORINE [Concomitant]

REACTIONS (4)
  - ALANINE AMINOTRANSFERASE INCREASED [None]
  - ASPARTATE AMINOTRANSFERASE INCREASED [None]
  - HEPATOMEGALY [None]
  - THERAPEUTIC RESPONSE DECREASED [None]
